FAERS Safety Report 9639990 (Version 1)
Quarter: 2013Q4

REPORT INFORMATION
  Report Type: Spontaneous
  Country: SE (occurrence: SE)
  Receive Date: 20131023
  Receipt Date: 20131023
  Transmission Date: 20140711
  Serious: Yes (Other)
  Sender: FDA-Public Use
  Company Number: PHHY2013SE115927

PATIENT
  Sex: Male

DRUGS (5)
  1. CICLOSPORIN [Suspect]
     Indication: PROPHYLAXIS AGAINST GRAFT VERSUS HOST DISEASE
  2. METHYLPREDNISOLONE [Suspect]
     Indication: PROPHYLAXIS AGAINST GRAFT VERSUS HOST DISEASE
  3. BUSULFAN [Concomitant]
     Dosage: 1.2 MG/KG EVERY 6 HOURS FOR 16 DOSES ON DAYS -10 THROUGH -6
     Route: 042
  4. CYCLOPHOSPHAMIDE [Concomitant]
     Dosage: 50 MG/KG DAILY FROM DAY -5 THROUGH -2
     Route: 042
  5. ANTITHYOCYTEGLOBULIN (RABBIT) [Concomitant]
     Dosage: 2.5 MG/KG DAILY FROM DAY -3 THROUGH DAY -1

REACTIONS (7)
  - Histiocytosis haematophagic [Unknown]
  - Blood stem cell transplant failure [Recovered/Resolved]
  - Epstein-Barr virus infection [Unknown]
  - Erythema infectiosum [Unknown]
  - Pneumonia [Unknown]
  - Obstructive airways disorder [Unknown]
  - Herpes simplex [Unknown]
